FAERS Safety Report 24342627 (Version 1)
Quarter: 2024Q3

REPORT INFORMATION
  Report Type: Spontaneous
  Country: US (occurrence: US)
  Receive Date: 20240920
  Receipt Date: 20240920
  Transmission Date: 20241017
  Serious: No
  Sender: Haleon PLC
  Company Number: US-HALEON-2196806

PATIENT
  Sex: Female

DRUGS (5)
  1. ADVIL [Suspect]
     Active Substance: IBUPROFEN\IBUPROFEN SODIUM
     Indication: Product used for unknown indication
  2. LOSARTAN [Suspect]
     Active Substance: LOSARTAN\LOSARTAN POTASSIUM
     Indication: Product used for unknown indication
  3. GABAPENTIN [Suspect]
     Active Substance: GABAPENTIN
     Indication: Product used for unknown indication
  4. OMEPRAZOLE [Suspect]
     Active Substance: OMEPRAZOLE
     Indication: Product used for unknown indication
  5. ZEJULA [Suspect]
     Active Substance: NIRAPARIB
     Indication: Ovarian cancer
     Dosage: EXPDATE:20271031
     Route: 048

REACTIONS (4)
  - Blood pressure increased [Not Recovered/Not Resolved]
  - Lethargy [Not Recovered/Not Resolved]
  - Tremor [Not Recovered/Not Resolved]
  - Appetite disorder [Not Recovered/Not Resolved]
